FAERS Safety Report 9163300 (Version 3)
Quarter: 2013Q2

REPORT INFORMATION
  Report Type: Spontaneous
  Country: FI (occurrence: FI)
  Receive Date: 20130314
  Receipt Date: 20130418
  Transmission Date: 20140414
  Serious: Yes (Hospitalization)
  Sender: FDA-Public Use
  Company Number: FI-GLAXOSMITHKLINE-B0874833A

PATIENT
  Sex: Female

DRUGS (2)
  1. IMIGRAN [Suspect]
     Indication: MIGRAINE
     Route: 065
  2. CONCURRENT MEDICATIONS [Concomitant]

REACTIONS (6)
  - Injection site injury [Unknown]
  - Vomiting [Unknown]
  - Thermal burn [Unknown]
  - Drug ineffective [Unknown]
  - Expired drug administered [Unknown]
  - Product quality issue [Unknown]
